FAERS Safety Report 9995829 (Version 1)
Quarter: 2014Q1

REPORT INFORMATION
  Report Type: Spontaneous
  Country: US (occurrence: None)
  Receive Date: 20140310
  Receipt Date: 20140310
  Transmission Date: 20141002
  Serious: No
  Sender: FDA-Public Use
  Company Number: None

PATIENT
  Age: 30 Year
  Sex: Female
  Weight: 87.54 kg

DRUGS (1)
  1. LINDANE 1 % SHAMPOO 60 ML [Suspect]
     Indication: LICE INFESTATION
     Dosage: USE 30 ML LEAVE ON FOR 10-20 MI ONE TIME APPLIED TO HEAD
     Route: 061
     Dates: start: 20140304

REACTIONS (4)
  - Vomiting [None]
  - Dizziness [None]
  - Somnolence [None]
  - Convulsion [None]
